FAERS Safety Report 8898452 (Version 1)
Quarter: 2012Q4

REPORT INFORMATION
  Report Type: 
  Country: SE (occurrence: SE)
  Receive Date: 20121109
  Receipt Date: 20121109
  Transmission Date: 20130627
  Serious: Yes (Hospitalization)
  Sender: FDA-Public Use
  Company Number: SE-PFIZER INC-2012276983

PATIENT
  Age: 57 Year
  Sex: Female

DRUGS (14)
  1. TAZOCIN [Suspect]
     Indication: SHIVERING
     Dosage: UNK
  2. TAZOCIN [Suspect]
     Indication: BLOOD NEUTROPHILS ABNORMAL
  3. FLUOROURACIL ^TEVA^ [Suspect]
     Indication: BILIARY CARCINOMA
     Dosage: UNK
  4. FLUOROURACIL ^TEVA^ [Suspect]
     Indication: METASTASES TO OVARY
  5. FLUOROURACIL ^TEVA^ [Suspect]
     Indication: LIVER METASTASES
  6. DUROGESIC [Concomitant]
     Dosage: UNK
  7. ATACAND PLUS [Concomitant]
     Dosage: 16mg/12.5mg
  8. SPASMOFEN [Concomitant]
     Dosage: UNK
  9. PANODIL [Concomitant]
     Dosage: 500 mg, UNK
  10. LAXOBERAL [Concomitant]
     Dosage: 7.5 mg/ml, UNK
     Route: 048
  11. MYCOSTATIN [Concomitant]
     Dosage: UNK
  12. EMGESAN [Concomitant]
     Dosage: 250 mg, UNK
  13. LOPERAMIDE [Concomitant]
     Dosage: UNK
  14. OPIUM TINCTURE [Concomitant]
     Dosage: UNK

REACTIONS (3)
  - Colitis [Unknown]
  - Urticaria [Unknown]
  - Lip swelling [Unknown]
